FAERS Safety Report 4402720-1 (Version None)
Quarter: 2004Q3

REPORT INFORMATION
  Report Type: 
  Country: None (occurrence: None)
  Receive Date: 20040721
  Receipt Date: 20040323
  Transmission Date: 20050211
  Serious: No
  Sender: FDA-Public Use
  Company Number: US-BRISTOL-MYERS SQUIBB COMPANY-12540308

PATIENT
  Age: 50 Year
  Sex: Female
  Weight: 58 kg

DRUGS (2)
  1. ESTRACE [Suspect]
     Indication: MENOPAUSAL SYMPTOMS
     Route: 048
     Dates: start: 20030701, end: 20031101
  2. ALLEGRA-D [Concomitant]
     Dates: start: 19980101

REACTIONS (3)
  - ABDOMINAL DISCOMFORT [None]
  - HEADACHE [None]
  - NAUSEA [None]
